FAERS Safety Report 7744247-5 (Version None)
Quarter: 2011Q3

REPORT INFORMATION
  Report Type: 
  Country: None (occurrence: None)
  Receive Date: 20110912
  Receipt Date: 20110829
  Transmission Date: 20111222
  Serious: Yes (Hospitalization)
  Sender: FDA-Public Use
  Company Number: PHHY2011BR79562

PATIENT
  Age: 27 Year
  Sex: Female

DRUGS (2)
  1. HYDRALAZINE HCL [Suspect]
     Indication: HYPERTENSION
  2. MAGNESIUM SULFATE [Suspect]

REACTIONS (5)
  - UTERINE ATONY [None]
  - WOUND INFECTION [None]
  - ANAEMIA [None]
  - UTERINE INVERSION [None]
  - MATERNAL EXPOSURE DURING PREGNANCY [None]
